FAERS Safety Report 15099933 (Version 1)
Quarter: 2018Q3

REPORT INFORMATION
  Report Type: Spontaneous
  Country: DK (occurrence: DK)
  Receive Date: 20180703
  Receipt Date: 20180703
  Transmission Date: 20181010
  Serious: Yes (Other)
  Sender: FDA-Public Use
  Company Number: DK-CONCORDIA PHARMACEUTICALS INC.-E2B_00013197

PATIENT
  Age: 55 Year
  Sex: Female

DRUGS (4)
  1. FRAGMIN [Concomitant]
     Active Substance: DALTEPARIN SODIUM
     Indication: THROMBOSIS PROPHYLAXIS
     Dosage: DOSIS: VARIERENDE 5.000?15.000 IE DAGLIGT.?STYRKE: VARIERENDE 5.000?15.000 ANTI XA IE
     Route: 058
     Dates: start: 20160914, end: 20171018
  2. RITUXIMAB. [Concomitant]
     Active Substance: RITUXIMAB
     Indication: PRODUCT USED FOR UNKNOWN INDICATION
     Route: 042
     Dates: start: 20160614
  3. PREDNISOLONE. [Suspect]
     Active Substance: PREDNISOLONE
     Indication: HAEMOLYSIS
     Dosage: DOSIS:: VARIERENDE FRA 10?100 MG. ?STYRKE: VARIERENDE
     Route: 048
     Dates: start: 201606, end: 2017
  4. UNIKALK MED D?VITAMIN [Concomitant]
     Indication: MINERAL SUPPLEMENTATION
     Dosage: STYRKE: 400 MG + 19 MIKROGRAM
     Route: 048
     Dates: start: 20160613

REACTIONS (3)
  - Osteoporosis [Not Recovered/Not Resolved]
  - Back pain [Not Recovered/Not Resolved]
  - Spinal compression fracture [Not Recovered/Not Resolved]

NARRATIVE: CASE EVENT DATE: 2017
